FAERS Safety Report 25604489 (Version 1)
Quarter: 2025Q3

REPORT INFORMATION
  Report Type: Spontaneous
  Country: EU (occurrence: EU)
  Receive Date: 20250725
  Receipt Date: 20250725
  Transmission Date: 20251021
  Serious: Yes (Other)
  Sender: AUROBINDO
  Company Number: EU-AEMPS-1722718

PATIENT
  Age: 58 Year
  Sex: Male

DRUGS (4)
  1. MEROPENEM [Suspect]
     Active Substance: MEROPENEM
     Indication: Sepsis
     Route: 042
     Dates: start: 20250522, end: 20250526
  2. DAPTOMYCIN [Suspect]
     Active Substance: DAPTOMYCIN
     Indication: Sepsis
     Route: 042
     Dates: start: 20250522, end: 20250526
  3. AMIODARONE [Concomitant]
     Active Substance: AMIODARONE
     Indication: Cardiogenic shock
     Route: 048
     Dates: start: 20250522
  4. ERYTHROMYCIN [Concomitant]
     Active Substance: ERYTHROMYCIN
     Indication: Constipation
     Dosage: 500 MILLIGRAM, *Q6H
     Route: 048
     Dates: start: 20250520, end: 20250615

REACTIONS (1)
  - Eosinophilia [Recovered/Resolved]

NARRATIVE: CASE EVENT DATE: 20250524
